FAERS Safety Report 8929093 (Version 1)
Quarter: 2012Q4

REPORT INFORMATION
  Report Type: 
  Country: VE (occurrence: VE)
  Receive Date: 20121127
  Receipt Date: 20121127
  Transmission Date: 20130627
  Serious: Yes (Other)
  Sender: FDA-Public Use
  Company Number: PHHY2011VE25739

PATIENT
  Age: 68 None
  Sex: Female

DRUGS (2)
  1. DIOVAN [Suspect]
     Indication: HYPERTENSION
     Dosage: 160 mg, daily
     Route: 048
     Dates: end: 201205
  2. DIOVAN [Suspect]
     Dosage: 320 mg, daily
     Route: 048
     Dates: start: 201205

REACTIONS (3)
  - Cerebrovascular accident [Recovered/Resolved]
  - Amnesia [Not Recovered/Not Resolved]
  - Headache [Unknown]
